FAERS Safety Report 13993657 (Version 1)
Quarter: 2017Q3

REPORT INFORMATION
  Report Type: Spontaneous
  Country: CA (occurrence: CA)
  Receive Date: 20170920
  Receipt Date: 20170920
  Transmission Date: 20171128
  Serious: Yes (Disabling)
  Sender: FDA-Public Use
  Company Number: CA-BAYER-2017-175565

PATIENT
  Age: 48 Year
  Sex: Female
  Weight: 86.62 kg

DRUGS (1)
  1. CIPRO [Suspect]
     Active Substance: CIPROFLOXACIN HYDROCHLORIDE
     Indication: PROPHYLAXIS
     Dosage: UNK, BID
     Route: 048

REACTIONS (2)
  - Tendonitis [Not Recovered/Not Resolved]
  - Impaired work ability [Not Recovered/Not Resolved]
